FAERS Safety Report 9399250 (Version 1)
Quarter: 2013Q3

REPORT INFORMATION
  Report Type: Spontaneous
  Country: GB (occurrence: None)
  Receive Date: 20130709
  Receipt Date: 20130709
  Transmission Date: 20140515
  Serious: Yes (Hospitalization, Disabling)
  Sender: FDA-Public Use
  Company Number: 2013AP006356

PATIENT
  Age: 100 Year
  Sex: Female

DRUGS (8)
  1. ALENDRONATE (ALENDRONATE SODIUM) [Suspect]
     Indication: BONE DISORDER
     Route: 048
     Dates: start: 20130511, end: 20130518
  2. ADCAL-D3 [Concomitant]
  3. CLOPIDOGREL (CLOPIDOGREL) [Concomitant]
  4. CO-DYDRAMOL (PARAMOL-118) [Concomitant]
  5. INAPAMIDE (INDAPAMIDE) [Concomitant]
  6. OMEPRAZOLE (OMEPRAZOLE) [Concomitant]
  7. ORAMORPH (MORPHINE SULFATE) [Concomitant]
  8. SENNA /00142201/ (SENNA ALEXANDRINA) [Concomitant]

REACTIONS (6)
  - Fluid intake reduced [None]
  - Lip ulceration [None]
  - Mouth ulceration [None]
  - Hypophagia [None]
  - Pain [None]
  - Tongue ulceration [None]
